FAERS Safety Report 14551592 (Version 1)
Quarter: 2018Q1

REPORT INFORMATION
  Report Type: Spontaneous
  Country: AR (occurrence: AR)
  Receive Date: 20180220
  Receipt Date: 20180220
  Transmission Date: 20180509
  Serious: Yes (Other)
  Sender: FDA-Public Use
  Company Number: AR-AMGEN-ARGSP2018020474

PATIENT
  Age: 67 Year
  Sex: Female

DRUGS (1)
  1. ENBREL [Suspect]
     Active Substance: ETANERCEPT
     Indication: RHEUMATOID ARTHRITIS
     Dosage: 50 MG, WEEKLY
     Route: 065
     Dates: start: 20171018, end: 20180207

REACTIONS (4)
  - Arthropathy [Not Recovered/Not Resolved]
  - Gait inability [Not Recovered/Not Resolved]
  - Fall [Not Recovered/Not Resolved]
  - Tendon disorder [Not Recovered/Not Resolved]

NARRATIVE: CASE EVENT DATE: 20180207
